FAERS Safety Report 13531734 (Version 1)
Quarter: 2017Q2

REPORT INFORMATION
  Report Type: Spontaneous
  Country: CH (occurrence: CH)
  Receive Date: 20170510
  Receipt Date: 20170510
  Transmission Date: 20170830
  Serious: Yes (Other)
  Sender: FDA-Public Use
  Company Number: CH-LPDUSPRD-20170564

PATIENT
  Age: 16 Year
  Sex: Female
  Weight: 55 kg

DRUGS (2)
  1. FERINJECT [Suspect]
     Active Substance: FERRIC CARBOXYMALTOSE
     Dosage: 1000MG
     Route: 041
     Dates: start: 20170323
  2. VITAMIN D3 STREULI [Suspect]
     Active Substance: CHOLECALCIFEROL
     Dosage: 300000 U
     Route: 030
     Dates: start: 20170323

REACTIONS (4)
  - Arthralgia [Unknown]
  - C-reactive protein increased [Unknown]
  - Walking disability [Unknown]
  - Myalgia [Unknown]

NARRATIVE: CASE EVENT DATE: 20170325
